FAERS Safety Report 19795250 (Version 1)
Quarter: 2021Q3

REPORT INFORMATION
  Report Type: Other
  Country: RU (occurrence: RU)
  Receive Date: 20210906
  Receipt Date: 20210906
  Transmission Date: 20211014
  Serious: Yes (Other)
  Sender: FDA-Public Use
  Company Number: RU-ROCHE-2900993

PATIENT

DRUGS (2)
  1. ALTEPLASE. [Suspect]
     Active Substance: ALTEPLASE
     Dosage: REMAINING DOSE BY CONTINUOUS INTRAVENOUS INFUSION WITHIN 60 MIN.
     Route: 042
  2. ALTEPLASE. [Suspect]
     Active Substance: ALTEPLASE
     Indication: ISCHAEMIC STROKE
     Dosage: 0.9 MG/KG; MAXIMUM DOSE 90 MG WAS ADMINISTERED AS AN INTRAVENOUS BOLUS OF 10 PERCENTAGE OF THE TOTAL
     Route: 042

REACTIONS (1)
  - Stress cardiomyopathy [Unknown]
